FAERS Safety Report 14213308 (Version 1)
Quarter: 2017Q4

REPORT INFORMATION
  Report Type: Spontaneous
  Country: US (occurrence: US)
  Receive Date: 20171122
  Receipt Date: 20171122
  Transmission Date: 20180321
  Serious: Yes (Hospitalization)
  Sender: FDA-Public Use
  Company Number: None

PATIENT
  Age: 70 Year
  Sex: Male

DRUGS (2)
  1. NIVOLUMAB [Suspect]
     Active Substance: NIVOLUMAB
     Indication: MALIGNANT MELANOMA
     Dosage: OTHER FREQUENCY:Q21 DAYS FOR C1-3;?
     Route: 042
     Dates: start: 20161125
  2. IPILIBUMAB [Suspect]
     Active Substance: IPILIMUMAB
     Indication: BRAF GENE MUTATION
     Dosage: OTHER FREQUENCY:Q21 DAYS X 3 CYCLE;?
     Route: 042
     Dates: start: 20161125

REACTIONS (1)
  - Colitis [None]

NARRATIVE: CASE EVENT DATE: 20170207
